FAERS Safety Report 8671141 (Version 2)
Quarter: 2014Q3

REPORT INFORMATION
  Report Type: Spontaneous
  Country: US (occurrence: US)
  Receive Date: 20120718
  Receipt Date: 20140723
  Transmission Date: 20150326
  Serious: No
  Sender: FDA-Public Use
  Company Number: US-BRISTOL-MYERS SQUIBB COMPANY-16608002

PATIENT
  Age: 70 Year
  Sex: Female
  Weight: 27.21 kg

DRUGS (6)
  1. L-LYSINE [Concomitant]
     Active Substance: LYSINE
  2. METOPROLOL [Concomitant]
     Active Substance: METOPROLOL
  3. ACYCLOVIR. [Concomitant]
     Active Substance: ACYCLOVIR
  4. BABY ASPIRIN [Concomitant]
     Active Substance: ASPIRIN
  5. COUMADIN [Suspect]
     Active Substance: WARFARIN SODIUM
     Indication: MITRAL VALVE REPLACEMENT
     Dosage: 1DF: 3MG AND 4MG ALTERNATING
     Route: 048
  6. GABAPENTIN. [Concomitant]
     Active Substance: GABAPENTIN

REACTIONS (3)
  - Herpes zoster [Unknown]
  - International normalised ratio increased [Unknown]
  - Asthenia [Unknown]

NARRATIVE: CASE EVENT DATE: 2013
